APPROVED DRUG PRODUCT: CLINIMIX E 2.75/25 SULFITE FREE W/ ELECT IN DEXTROSE 25% W/ CALCIUM IN PLASTIC CONTAINER
Active Ingredient: AMINO ACIDS; CALCIUM CHLORIDE; DEXTROSE; MAGNESIUM CHLORIDE; POTASSIUM PHOSPHATE, DIBASIC; SODIUM ACETATE; SODIUM CHLORIDE
Strength: 2.75%;33MG/100ML;25GM/100ML;51MG/100ML;261MG/100ML;217MG/100ML;112MG/100ML
Dosage Form/Route: INJECTABLE;INJECTION
Application: N020678 | Product #005
Applicant: BAXTER HEALTHCARE CORP
Approved: Mar 26, 1997 | RLD: Yes | RS: Yes | Type: RX